FAERS Safety Report 5851611-8 (Version None)
Quarter: 2008Q3

REPORT INFORMATION
  Report Type: 
  Country: None (occurrence: None)
  Receive Date: 20080820
  Receipt Date: 20080812
  Transmission Date: 20090109
  Serious: Yes (Other)
  Sender: FDA-Public Use
  Company Number: US-ASTRAZENECA-2008UW16420

PATIENT
  Age: 82 Year
  Sex: Female
  Weight: 68 kg

DRUGS (9)
  1. ARIMIDEX [Suspect]
     Indication: BREAST CANCER
     Route: 048
     Dates: start: 20030101
  2. AMANTADINE HCL [Concomitant]
  3. CARBIDOPA [Concomitant]
  4. LEVADOPA [Concomitant]
  5. VOLTEX [Concomitant]
  6. PLAVIX [Concomitant]
  7. POTASSIUM CHLORIDE [Concomitant]
  8. FUROSEMIDE [Concomitant]
  9. LIPITOR [Concomitant]

REACTIONS (1)
  - PARKINSON'S DISEASE [None]
